FAERS Safety Report 16793409 (Version 4)
Quarter: 2024Q4

REPORT INFORMATION
  Report Type: Report from Study
  Country: JP (occurrence: JP)
  Receive Date: 20190911
  Receipt Date: 20241129
  Transmission Date: 20250115
  Serious: Yes (Hospitalization, Other)
  Sender: ROCHE
  Company Number: JP-CHUGAI-A2019030951ROCHE

PATIENT
  Age: 66 Year
  Sex: Female
  Weight: 66.0 kg

DRUGS (14)
  1. TECENTRIQ [Suspect]
     Active Substance: ATEZOLIZUMAB
     Indication: Non-small cell lung cancer
     Route: 041
     Dates: start: 20180823, end: 20181213
  2. TECENTRIQ [Suspect]
     Active Substance: ATEZOLIZUMAB
     Indication: Lung adenocarcinoma
     Route: 041
     Dates: start: 20190207, end: 20190502
  3. TECENTRIQ [Suspect]
     Active Substance: ATEZOLIZUMAB
     Route: 041
     Dates: start: 20190606, end: 201912
  4. TECENTRIQ [Suspect]
     Active Substance: ATEZOLIZUMAB
     Route: 041
     Dates: start: 201808
  5. SOLANAX [Concomitant]
     Active Substance: ALPRAZOLAM
     Dosage: 0.4 MILLIGRAM
     Route: 048
  6. BROTIZOLAM [Concomitant]
     Active Substance: BROTIZOLAM
     Dosage: 0.25 MILLIGRAM
     Route: 048
  7. GABAPENTIN [Concomitant]
     Active Substance: GABAPENTIN
     Dosage: 400 MILLIGRAM
     Route: 048
  8. POLAPREZINC [Concomitant]
     Active Substance: POLAPREZINC
     Dosage: 150 MILLIGRAM
     Route: 048
  9. EPRAZINONE [Concomitant]
     Active Substance: EPRAZINONE
     Dosage: 60 MILLIGRAM
     Route: 048
  10. METHYLCOBALAMIN [Concomitant]
     Active Substance: METHYLCOBALAMIN
     Dosage: 1500 MILLIGRAM
     Route: 048
  11. ALPRAZOLAM [Concomitant]
     Active Substance: ALPRAZOLAM
     Dosage: UNK
     Route: 048
  12. FLAVIN ADENINE DINUCLEOTIDE [Concomitant]
     Active Substance: FLAVIN ADENINE DINUCLEOTIDE
     Dosage: 30 MILLIGRAM
     Route: 048
  13. POLAPREZINC [Concomitant]
     Active Substance: POLAPREZINC
     Dosage: UNK
     Route: 048
  14. GABAPENTIN ENACARBIL [Concomitant]
     Active Substance: GABAPENTIN ENACARBIL
     Route: 048

REACTIONS (7)
  - Lichenoid keratosis [Recovering/Resolving]
  - Pneumonia [Recovering/Resolving]
  - Bronchiectasis [Recovered/Resolved]
  - Interstitial lung disease [Unknown]
  - Blister [Recovering/Resolving]
  - Pyrexia [Recovering/Resolving]
  - Oxygen saturation decreased [Unknown]

NARRATIVE: CASE EVENT DATE: 20190101
